FAERS Safety Report 9921224 (Version 3)
Quarter: 2014Q2

REPORT INFORMATION
  Report Type: Spontaneous
  Country: DE (occurrence: DE)
  Receive Date: 20140225
  Receipt Date: 20140423
  Transmission Date: 20141212
  Serious: Yes (Other)
  Sender: FDA-Public Use
  Company Number: DE-BAYER-2014-026140

PATIENT
  Age: 24 Year
  Sex: Female
  Weight: 60 kg

DRUGS (2)
  1. AVALOX [Suspect]
     Indication: SINOBRONCHITIS
     Dosage: 400 MG, QD
     Dates: start: 20140205, end: 20140207
  2. AVALOX [Suspect]
     Indication: INFLUENZA

REACTIONS (12)
  - Nervous system disorder [Recovered/Resolved]
  - Myalgia [Recovered/Resolved]
  - Panic attack [Recovered/Resolved]
  - Crying [Recovered/Resolved]
  - Tearfulness [Recovered/Resolved]
  - Panic attack [Recovered/Resolved]
  - Tremor [Recovered/Resolved]
  - Somnolence [Recovered/Resolved]
  - Musculoskeletal stiffness [Recovered/Resolved]
  - Muscle spasms [Recovered/Resolved]
  - Feeling of relaxation [Recovered/Resolved]
  - Fear [Recovered/Resolved]
